FAERS Safety Report 11569947 (Version 1)
Quarter: 2015Q3

REPORT INFORMATION
  Report Type: Spontaneous
  Country: US (occurrence: None)
  Receive Date: 20150928
  Receipt Date: 20150928
  Transmission Date: 20151125
  Serious: Yes (Disabling)
  Sender: FDA-Public Use
  Company Number: None

PATIENT
  Age: 29 Year
  Sex: Male
  Weight: 61.24 kg

DRUGS (1)
  1. MIRALAX [Suspect]
     Active Substance: POLYETHYLENE GLYCOL 3350
     Indication: CONSTIPATION
     Route: 048

REACTIONS (9)
  - Abdominal pain upper [None]
  - Dysstasia [None]
  - Autonomic nervous system imbalance [None]
  - Feeling abnormal [None]
  - Hyperhidrosis [None]
  - Thirst [None]
  - Urine output decreased [None]
  - Activities of daily living impaired [None]
  - Headache [None]
